FAERS Safety Report 15568233 (Version 2)
Quarter: 2018Q4

REPORT INFORMATION
  Report Type: Report from Study
  Country: JP (occurrence: JP)
  Receive Date: 20181030
  Receipt Date: 20181231
  Transmission Date: 20190205
  Serious: Yes (Hospitalization)
  Sender: FDA-Public Use
  Company Number: JP-CELGENEUS-JPN-20181009268

PATIENT
  Age: 78 Year
  Sex: Male

DRUGS (5)
  1. REVLIMID [Suspect]
     Active Substance: LENALIDOMIDE
     Dosage: 10 MILLIGRAM
     Route: 048
     Dates: start: 20180222, end: 20180308
  2. SULFAMETHOXAZOLE/TRIMETHOPRIM [Concomitant]
     Active Substance: SULFAMETHOXAZOLE\TRIMETHOPRIM
     Indication: PROPHYLAXIS
     Dosage: UNKNOWN
     Route: 048
  3. ASPIRIN. [Concomitant]
     Active Substance: ASPIRIN
     Indication: PROPHYLAXIS
     Dosage: UNKNOWN
     Route: 048
  4. REVLIMID [Suspect]
     Active Substance: LENALIDOMIDE
     Dosage: 10 MILLIGRAM
     Route: 048
     Dates: start: 20180209, end: 20180211
  5. REVLIMID [Suspect]
     Active Substance: LENALIDOMIDE
     Indication: ADULT T-CELL LYMPHOMA/LEUKAEMIA
     Dosage: 10 MILLIGRAM
     Route: 048
     Dates: start: 20180131, end: 20180204

REACTIONS (2)
  - Pyrexia [Recovered/Resolved]
  - Erythema multiforme [Recovered/Resolved]

NARRATIVE: CASE EVENT DATE: 20180202
